FAERS Safety Report 14871695 (Version 1)
Quarter: 2018Q2

REPORT INFORMATION
  Report Type: Report from Study
  Country: US (occurrence: US)
  Receive Date: 20180509
  Receipt Date: 20180509
  Transmission Date: 20180711
  Serious: Yes (Hospitalization)
  Sender: FDA-Public Use
  Company Number: US-ACTELION-A-NJ2017-153916

PATIENT
  Age: 73 Year
  Sex: Female
  Weight: 84.81 kg

DRUGS (5)
  1. UPTRAVI [Suspect]
     Active Substance: SELEXIPAG
     Dosage: 600 MCG, BID
     Route: 048
     Dates: start: 20180426
  2. ADCIRCA [Concomitant]
     Active Substance: TADALAFIL
  3. UPTRAVI [Suspect]
     Active Substance: SELEXIPAG
     Indication: PULMONARY ARTERIAL HYPERTENSION
     Dosage: 400 MCG, BID
     Route: 048
  4. LASIX [Suspect]
     Active Substance: FUROSEMIDE
     Indication: PRODUCT USED FOR UNKNOWN INDICATION
     Route: 065
  5. TORSEMIDE. [Concomitant]
     Active Substance: TORSEMIDE

REACTIONS (14)
  - Muscle injury [Unknown]
  - Neck pain [Recovering/Resolving]
  - Pruritus [Recovering/Resolving]
  - Blood pressure diastolic decreased [Recovering/Resolving]
  - Dehydration [Unknown]
  - Musculoskeletal pain [Recovering/Resolving]
  - Feeling abnormal [Recovering/Resolving]
  - Skin exfoliation [Unknown]
  - Blood pressure decreased [Unknown]
  - Dizziness [Not Recovered/Not Resolved]
  - Presyncope [Unknown]
  - Epistaxis [Unknown]
  - Rash generalised [Unknown]
  - Headache [Recovering/Resolving]
